FAERS Safety Report 16922756 (Version 1)
Quarter: 2019Q4

REPORT INFORMATION
  Report Type: Report from Study
  Country: None (occurrence: HU)
  Receive Date: 20191016
  Receipt Date: 20191016
  Transmission Date: 20200122
  Serious: Yes (Hospitalization)
  Sender: FDA-Public Use
  Company Number: HU-ABBVIE-19K-076-2961385-00

PATIENT
  Age: 25 Year
  Sex: Male

DRUGS (1)
  1. HUMIRA [Suspect]
     Active Substance: ADALIMUMAB
     Indication: CROHN^S DISEASE
     Route: 058
     Dates: start: 20140513

REACTIONS (4)
  - Asthenia [Not Recovered/Not Resolved]
  - General physical health deterioration [Unknown]
  - Intestinal obstruction [Not Recovered/Not Resolved]
  - Judgement impaired [Unknown]

NARRATIVE: CASE EVENT DATE: 201909
